FAERS Safety Report 9971701 (Version 1)
Quarter: 2014Q1

REPORT INFORMATION
  Report Type: Spontaneous
  Country: US (occurrence: None)
  Receive Date: 20140305
  Receipt Date: 20140305
  Transmission Date: 20141002
  Serious: No
  Sender: FDA-Public Use
  Company Number: None

PATIENT
  Age: 35 Year
  Sex: Female
  Weight: 70.76 kg

DRUGS (1)
  1. ADVAIR DISKUS [Suspect]
     Indication: BRONCHITIS
     Route: 048

REACTIONS (6)
  - Chest pain [None]
  - Insomnia [None]
  - Nervousness [None]
  - Night sweats [None]
  - Heart rate increased [None]
  - Asthenia [None]
